FAERS Safety Report 7416353-6 (Version None)
Quarter: 2011Q2

REPORT INFORMATION
  Report Type: 
  Country: None (occurrence: None)
  Receive Date: 20110414
  Receipt Date: 20110406
  Transmission Date: 20111010
  Serious: Yes (Death, Other)
  Sender: FDA-Public Use
  Company Number: US-BAXTER-2011BH003685

PATIENT
  Age: 76 Year
  Sex: Male
  Weight: 86 kg

DRUGS (13)
  1. HEPARIN SODIUM INJECTION [Suspect]
     Route: 042
     Dates: start: 20080118, end: 20080123
  2. COZAAR [Concomitant]
     Indication: PRODUCT USED FOR UNKNOWN INDICATION
     Route: 065
  3. TETRACAINE HYDROCHLORIDE [Concomitant]
     Indication: PRODUCT USED FOR UNKNOWN INDICATION
     Route: 065
  4. LASIX [Concomitant]
     Indication: PRODUCT USED FOR UNKNOWN INDICATION
     Route: 065
  5. PREDNISONE [Concomitant]
     Indication: PRODUCT USED FOR UNKNOWN INDICATION
     Route: 065
  6. ALLOPURINOL [Concomitant]
     Indication: PRODUCT USED FOR UNKNOWN INDICATION
     Route: 065
  7. HEPARIN SODIUM INJECTION [Suspect]
     Indication: ANTICOAGULATION DRUG LEVEL
     Route: 042
     Dates: start: 20080116, end: 20080116
  8. COREG [Concomitant]
     Indication: PRODUCT USED FOR UNKNOWN INDICATION
     Route: 065
  9. ULTRAM [Concomitant]
     Indication: PRODUCT USED FOR UNKNOWN INDICATION
     Route: 065
  10. ACTONEL [Concomitant]
     Indication: PRODUCT USED FOR UNKNOWN INDICATION
     Route: 065
  11. DIGOXIN [Concomitant]
     Indication: PRODUCT USED FOR UNKNOWN INDICATION
     Route: 065
  12. WARFARIN [Concomitant]
     Indication: PRODUCT USED FOR UNKNOWN INDICATION
     Route: 065
  13. GENGRAF [Concomitant]
     Indication: PRODUCT USED FOR UNKNOWN INDICATION
     Route: 065

REACTIONS (14)
  - SEPTIC SHOCK [None]
  - CONDITION AGGRAVATED [None]
  - DEHYDRATION [None]
  - DISSEMINATED INTRAVASCULAR COAGULATION [None]
  - CLOSTRIDIUM DIFFICILE COLITIS [None]
  - RENAL FAILURE ACUTE [None]
  - ATRIAL FIBRILLATION [None]
  - HEPARIN-INDUCED THROMBOCYTOPENIA [None]
  - CHRONIC OBSTRUCTIVE PULMONARY DISEASE [None]
  - DEEP VEIN THROMBOSIS [None]
  - HYPOTENSION [None]
  - RESPIRATORY FAILURE [None]
  - SEPSIS [None]
  - PNEUMONIA [None]
